FAERS Safety Report 22913158 (Version 4)
Quarter: 2024Q4

REPORT INFORMATION
  Report Type: Spontaneous
  Country: US (occurrence: US)
  Receive Date: 20230906
  Receipt Date: 20241125
  Transmission Date: 20250114
  Serious: Yes (Hospitalization, Other)
  Sender: PFIZER
  Company Number: US-PFIZER INC-202300293537

PATIENT
  Age: 77 Year
  Sex: Female
  Weight: 82.1 kg

DRUGS (2)
  1. XELJANZ XR [Suspect]
     Active Substance: TOFACITINIB CITRATE
     Indication: Rheumatoid arthritis
     Dosage: 11 MG, 1X/DAY
     Route: 048
  2. XARELTO [Concomitant]
     Active Substance: RIVAROXABAN
     Indication: Deep vein thrombosis
     Dosage: UNK

REACTIONS (8)
  - Spinal operation [Unknown]
  - Fall [Unknown]
  - Ligament sprain [Unknown]
  - Ankle fracture [Unknown]
  - Fracture [Unknown]
  - COVID-19 [Unknown]
  - Joint range of motion decreased [Recovering/Resolving]
  - Cerebrovascular accident [Unknown]

NARRATIVE: CASE EVENT DATE: 20240701
